FAERS Safety Report 7795056-2 (Version None)
Quarter: 2011Q4

REPORT INFORMATION
  Report Type: 
  Country: None (occurrence: None)
  Receive Date: 20111004
  Receipt Date: 20110922
  Transmission Date: 20120403
  Serious: No
  Sender: FDA-Public Use
  Company Number: US-B.I. PHARMACEUTICALS,INC./RIDGEFIELD-2011-BP-22742BP

PATIENT
  Sex: Female

DRUGS (3)
  1. COUMADIN [Concomitant]
  2. PRADAXA [Suspect]
  3. COUMADIN [Concomitant]

REACTIONS (1)
  - GASTRITIS [None]
